FAERS Safety Report 4499161-8 (Version None)
Quarter: 2004Q4

REPORT INFORMATION
  Report Type: 
  Country: None (occurrence: None)
  Receive Date: 20041111
  Receipt Date: 20040928
  Transmission Date: 20050328
  Serious: Yes (Hospitalization)
  Sender: FDA-Public Use
  Company Number: GB-ROCHE-381598

PATIENT
  Sex: Female

DRUGS (3)
  1. VESANOID [Suspect]
     Route: 048
  2. IDARUBICIN [Concomitant]
     Route: 042
  3. FLUCONAZOLE [Concomitant]
     Route: 048

REACTIONS (2)
  - OESOPHAGEAL ACHALASIA [None]
  - OESOPHAGITIS [None]
